FAERS Safety Report 5729529-0 (Version None)
Quarter: 2008Q2

REPORT INFORMATION
  Report Type: 
  Country: None (occurrence: None)
  Receive Date: 20080501
  Receipt Date: 20080423
  Transmission Date: 20081010
  Serious: Yes (Hospitalization, Other)
  Sender: FDA-Public Use
  Company Number: 026788

PATIENT
  Age: 28 Year
  Sex: Male

DRUGS (1)
  1. CLARAVIS [Suspect]
     Indication: ACNE
     Dosage: 40 MG, BID, ORAL
     Route: 048
     Dates: start: 20080204, end: 20080305

REACTIONS (4)
  - ALCOHOLISM [None]
  - CRYING [None]
  - DEPRESSION [None]
  - SUICIDE ATTEMPT [None]
